FAERS Safety Report 7884631-2 (Version None)
Quarter: 2011Q4

REPORT INFORMATION
  Report Type: 
  Country: None (occurrence: None)
  Receive Date: 20111102
  Receipt Date: 20111027
  Transmission Date: 20120403
  Serious: Yes (Other)
  Sender: FDA-Public Use
  Company Number: US-ABBOTT-11P-163-0868288-00

PATIENT
  Sex: Female
  Weight: 63.56 kg

DRUGS (10)
  1. HUMIRA [Suspect]
     Indication: RHEUMATOID ARTHRITIS
     Dates: end: 20060501
  2. NEXIUM [Concomitant]
     Indication: GASTROOESOPHAGEAL REFLUX DISEASE
  3. HUMIRA [Suspect]
     Indication: RHEUMATOID ARTHRITIS
     Dates: start: 20110501
  4. ROZEREM [Concomitant]
     Indication: INSOMNIA
  5. METHOTREXATE [Concomitant]
     Indication: RHEUMATOID ARTHRITIS
     Dosage: 2.5MG WEEKLY
  6. ZOLOFT [Concomitant]
     Indication: DEPRESSION
  7. PHENERGAN HCL [Concomitant]
     Indication: NAUSEA
  8. ABILIFY [Concomitant]
     Indication: DEPRESSION
  9. HUMIRA [Suspect]
     Dates: start: 20110701
  10. OXYCONTIN [Concomitant]
     Indication: PAIN

REACTIONS (5)
  - RHEUMATOID ARTHRITIS [None]
  - JOINT SWELLING [None]
  - DRUG INEFFECTIVE [None]
  - OSTEOARTHRITIS [None]
  - ARTHRALGIA [None]
